FAERS Safety Report 22226735 (Version 2)
Quarter: 2023Q2

REPORT INFORMATION
  Report Type: Spontaneous
  Country: US (occurrence: US)
  Receive Date: 20230419
  Receipt Date: 20230509
  Transmission Date: 20230722
  Serious: Yes (Death)
  Sender: FDA-Public Use
  Company Number: US-Vifor (International) Inc.-VIT-2023-02697

PATIENT
  Age: 44 Year
  Sex: Male
  Weight: 114 kg

DRUGS (1)
  1. MIRCERA [Suspect]
     Active Substance: METHOXY POLYETHYLENE GLYCOL-EPOETIN BETA
     Indication: Anaemia
     Route: 042
     Dates: start: 20230407, end: 20230407

REACTIONS (4)
  - Hypersensitivity [Fatal]
  - Malaise [Fatal]
  - Unresponsive to stimuli [Fatal]
  - Heart rate increased [Fatal]

NARRATIVE: CASE EVENT DATE: 20230407
